FAERS Safety Report 4822149-1 (Version None)
Quarter: 2005Q4

REPORT INFORMATION
  Report Type: 
  Country: None (occurrence: None)
  Receive Date: 20051107
  Receipt Date: 20051028
  Transmission Date: 20060501
  Serious: Yes (Hospitalization)
  Sender: FDA-Public Use
  Company Number: SE-ABBOTT-05P-150-0315876-00

PATIENT
  Sex: Male

DRUGS (5)
  1. ERGENYL [Suspect]
     Indication: EPILEPSY
     Dates: end: 20050501
  2. TOPIRAMATE [Concomitant]
     Indication: DRUG USE FOR UNKNOWN INDICATION
  3. BUDESONIDE [Concomitant]
     Indication: DRUG USE FOR UNKNOWN INDICATION
  4. BACLOFEN [Concomitant]
     Indication: DRUG USE FOR UNKNOWN INDICATION
  5. OMEPRAZOLE [Concomitant]
     Indication: DRUG USE FOR UNKNOWN INDICATION

REACTIONS (12)
  - FEEDING DISORDER [None]
  - GASTROINTESTINAL DISORDER [None]
  - GENERAL NUTRITION DISORDER [None]
  - HYPOALBUMINAEMIA [None]
  - JOINT SWELLING [None]
  - OEDEMA PERIPHERAL [None]
  - RASH [None]
  - RESPIRATORY TRACT INFECTION [None]
  - SEDATION [None]
  - SWELLING FACE [None]
  - THROMBOCYTOPENIA [None]
  - VOMITING [None]
